FAERS Safety Report 23046354 (Version 1)
Quarter: 2023Q4

REPORT INFORMATION
  Report Type: Spontaneous
  Country: US (occurrence: None)
  Receive Date: 20231009
  Receipt Date: 20231009
  Transmission Date: 20240110
  Serious: Yes (Life-Threatening, Hospitalization)
  Sender: FDA-Public Use
  Company Number: 2023A227347

PATIENT
  Age: 58 Year
  Sex: Male

DRUGS (4)
  1. TICAGRELOR [Suspect]
     Active Substance: TICAGRELOR
     Route: 048
  2. TICAGRELOR [Suspect]
     Active Substance: TICAGRELOR
     Route: 048
  3. ASPIRIN [Suspect]
     Active Substance: ASPIRIN
  4. CANGRELOR [Concomitant]
     Active Substance: CANGRELOR
     Route: 042

REACTIONS (2)
  - Hypoxia [Unknown]
  - Bronchial haemorrhage [Unknown]
